FAERS Safety Report 8804868 (Version 1)
Quarter: 2012Q4

REPORT INFORMATION
  Report Type: 
  Country: US (occurrence: US)
  Receive Date: 20120924
  Receipt Date: 20120924
  Transmission Date: 20130627
  Serious: Yes (Other)
  Sender: FDA-Public Use
  Company Number: US-PFIZER INC-2012235025

PATIENT
  Sex: Male

DRUGS (2)
  1. LYRICA [Suspect]
     Indication: SCIATICA
     Dosage: 200 mg, 3x/day
     Dates: start: 20091228
  2. LYRICA [Suspect]
     Indication: BACK PAIN

REACTIONS (2)
  - Renal failure [Unknown]
  - Rhabdomyolysis [Unknown]
